FAERS Safety Report 14946415 (Version 1)
Quarter: 2018Q3

REPORT INFORMATION
  Report Type: Report from Study
  Country: US (occurrence: US)
  Receive Date: 20180529
  Receipt Date: 20180529
  Transmission Date: 20181010
  Serious: No
  Sender: FDA-Public Use
  Company Number: US-SA-2018SA133827

PATIENT
  Age: 15 Year
  Sex: Male

DRUGS (8)
  1. BENADRYL [Concomitant]
     Active Substance: DIPHENHYDRAMINE HYDROCHLORIDE
     Dosage: UNK UNK,UNK
     Route: 065
  2. EUCERIN [UREA] [Concomitant]
  3. BLINDED DUPILUMAB [Suspect]
     Active Substance: DUPILUMAB
     Indication: DERMATITIS ATOPIC
     Dosage: UNK UNK,1X
     Route: 058
     Dates: start: 20170929, end: 20170929
  4. EPINEPHRINE. [Concomitant]
     Active Substance: EPINEPHRINE
     Dosage: UNK UNK,UNK
     Route: 065
  5. BLINDED DUPILUMAB [Suspect]
     Active Substance: DUPILUMAB
     Dosage: UNK UNK,QOW
     Route: 058
     Dates: start: 20171011, end: 20171030
  6. BLINDED NO STUDY DRUG GIVEN [Suspect]
     Active Substance: INVESTIGATIONAL PRODUCT
     Indication: DERMATITIS ATOPIC
     Dosage: UNK UNK,1X
     Route: 058
     Dates: start: 20170929, end: 20170929
  7. ZYRTEC [Concomitant]
     Active Substance: CETIRIZINE HYDROCHLORIDE
     Dosage: UNK UNK,UNK
     Route: 065
  8. BLINDED NO STUDY DRUG GIVEN [Suspect]
     Active Substance: INVESTIGATIONAL PRODUCT
     Dosage: UNK UNK,QOW
     Route: 058
     Dates: start: 20171011, end: 20171030

REACTIONS (2)
  - Anaphylactic reaction [None]
  - Food allergy [Recovered/Resolved]

NARRATIVE: CASE EVENT DATE: 20171028
